FAERS Safety Report 5332932-4 (Version None)
Quarter: 2007Q2

REPORT INFORMATION
  Report Type: 
  Country: None (occurrence: None)
  Receive Date: 20070521
  Receipt Date: 20070509
  Transmission Date: 20071010
  Serious: Yes (Hospitalization)
  Sender: FDA-Public Use
  Company Number: 151274

PATIENT
  Age: 39 Year
  Sex: Female
  Weight: 78.0187 kg

DRUGS (6)
  1. AVONEX [Suspect]
     Indication: MULTIPLE SCLEROSIS
     Dosage: SEE IMAGE
     Route: 030
     Dates: start: 19970301, end: 19970501
  2. AVONEX [Suspect]
     Indication: MULTIPLE SCLEROSIS
     Dosage: SEE IMAGE
     Route: 030
     Dates: start: 19970501, end: 19970601
  3. AVONEX [Suspect]
     Indication: MULTIPLE SCLEROSIS
     Dosage: SEE IMAGE
     Route: 030
     Dates: start: 19970601, end: 19970701
  4. AVONEX [Suspect]
     Indication: MULTIPLE SCLEROSIS
     Dosage: SEE IMAGE
     Route: 030
     Dates: start: 19970714, end: 20050301
  5. PREDNISONE TAB [Concomitant]
  6. BIRTH CONTROL [Concomitant]

REACTIONS (5)
  - INFLUENZA LIKE ILLNESS [None]
  - PROTEIN C DEFICIENCY [None]
  - PULMONARY THROMBOSIS [None]
  - THROMBOSIS [None]
  - VULVOVAGINITIS [None]
